FAERS Safety Report 24141508 (Version 1)
Quarter: 2024Q3

REPORT INFORMATION
  Report Type: Spontaneous
  Country: GB (occurrence: GB)
  Receive Date: 20240726
  Receipt Date: 20240726
  Transmission Date: 20241017
  Serious: Yes (Life-Threatening, Other)
  Sender: RANBAXY
  Company Number: GB-MHRA-TPP4829565C1835637YC1720769641527

PATIENT
  Age: 71 Year
  Sex: Male
  Weight: 72 kg

DRUGS (9)
  1. OXALIPLATIN [Suspect]
     Active Substance: OXALIPLATIN
     Indication: Product used for unknown indication
     Dosage: UNK
     Route: 065
     Dates: start: 20240624
  2. HYDROXOCOBALAMIN [Concomitant]
     Active Substance: HYDROXOCOBALAMIN
     Indication: Product used for unknown indication
     Dosage: USE AS DIRECTED
     Route: 065
     Dates: start: 20240617
  3. MAGNESIUM ASPARTATE [Concomitant]
     Active Substance: MAGNESIUM ASPARTATE
     Indication: Product used for unknown indication
     Dosage: 1 SACHET TWICE A DAY FOR 1 DOSE
     Route: 065
     Dates: start: 20240624, end: 20240625
  4. DOXAZOSIN [Concomitant]
     Active Substance: DOXAZOSIN MESYLATE
     Indication: Product used for unknown indication
     Dosage: EACH NIGHT
     Route: 065
     Dates: start: 20231013
  5. AMLODIPINE [Concomitant]
     Active Substance: AMLODIPINE BESYLATE
     Indication: Product used for unknown indication
     Dosage: 1 DOSAGE FORM, DAILY
     Route: 065
     Dates: start: 20240316
  6. ACETAMINOPHEN [Concomitant]
     Active Substance: ACETAMINOPHEN
     Indication: Product used for unknown indication
     Dosage: 1G FOUR TIMES A DAY
     Route: 065
     Dates: start: 20240316
  7. FORCEVAL SOLUBLE [Concomitant]
     Indication: Product used for unknown indication
     Dosage: 1 DOSAGE FORM, DAILY
     Route: 065
     Dates: start: 20240326
  8. POTASSIUM BICARBONATE\SODIUM ALGINATE [Concomitant]
     Active Substance: POTASSIUM BICARBONATE\SODIUM ALGINATE
     Indication: Product used for unknown indication
     Dosage: 5ML - 10ML 4 TIMES/DAY WHEN REQUIRED AS DIRECTE...
     Route: 065
     Dates: start: 20240612
  9. OMEPRAZOLE [Concomitant]
     Active Substance: OMEPRAZOLE
     Indication: Product used for unknown indication
     Dosage: TAKE ONE TWICE DAILY AS DIRECTED BY ONCOLOGY
     Route: 065
     Dates: start: 20240612

REACTIONS (5)
  - Anaphylactic reaction [Recovered/Resolved]
  - Feeling hot [Unknown]
  - Erythema [Unknown]
  - Cardiac arrest [Recovered/Resolved]
  - Malaise [Unknown]
